FAERS Safety Report 4689178-2 (Version None)
Quarter: 2005Q2

REPORT INFORMATION
  Report Type: 
  Country: None (occurrence: None)
  Receive Date: 20050613
  Receipt Date: 20050309
  Transmission Date: 20051028
  Serious: Yes (Hospitalization)
  Sender: FDA-Public Use
  Company Number: PHRM2005FR01047

PATIENT
  Age: 57 Year
  Sex: Male
  Weight: 77 kg

DRUGS (6)
  1. ZOMETA [Suspect]
     Indication: LUNG NEOPLASM MALIGNANT
     Dosage: 4 MG EVERY 3 WEEKS
     Route: 042
  2. SOLUPRED [Suspect]
     Indication: METASTASES TO BONE
     Dosage: 60 MG DAILY
     Route: 048
     Dates: start: 20040401
  3. TAXOTERE [Suspect]
     Dates: start: 20040617
  4. PREVISCAN [Concomitant]
  5. OMEPRAZOLE [Concomitant]
  6. SILOMAT [Concomitant]

REACTIONS (3)
  - ABNORMAL BEHAVIOUR [None]
  - DELUSION [None]
  - EXCITABILITY [None]
